FAERS Safety Report 4421309-1 (Version None)
Quarter: 2004Q3

REPORT INFORMATION
  Report Type: 
  Country: None (occurrence: None)
  Receive Date: 20040804
  Receipt Date: 20040716
  Transmission Date: 20050211
  Serious: Yes (Death)
  Sender: FDA-Public Use
  Company Number: 200401488

PATIENT

DRUGS (4)
  1. ANEXATE    (FLUMATENIL) [Suspect]
     Indication: ANAESTHESIA REVERSAL
  2. SOSEGON (PENTAZOCINE) [Suspect]
     Indication: ANALGESIC EFFECT
  3. SUCCIN (SUXAMETHONIUM CHLORIDE) [Suspect]
     Indication: HYPOTONIA
  4. MIDAZOLAM [Suspect]
     Indication: ANALGESIC EFFECT

REACTIONS (2)
  - ANAESTHETIC COMPLICATION [None]
  - PROCEDURAL COMPLICATION [None]
